FAERS Safety Report 6048498-X (Version None)
Quarter: 2009Q1

REPORT INFORMATION
  Report Type: 
  Country: None (occurrence: None)
  Receive Date: 20090123
  Receipt Date: 20090116
  Transmission Date: 20090719
  Serious: Yes (Other)
  Sender: FDA-Public Use
  Company Number: B0554526A

PATIENT
  Age: 51 Year
  Sex: Female

DRUGS (8)
  1. ARIXTRA [Suspect]
     Indication: THROMBOSIS PROPHYLAXIS
     Dosage: 7.5MG PER DAY
     Route: 058
     Dates: start: 20080601, end: 20080919
  2. TAXOL [Concomitant]
     Indication: CHEMOTHERAPY
     Route: 042
     Dates: start: 20080904
  3. CARBOPLATIN [Concomitant]
     Indication: CHEMOTHERAPY
     Route: 042
     Dates: start: 20080904
  4. NEXIUM [Concomitant]
     Dosage: 40MG PER DAY
     Route: 065
  5. ACTRAPID [Concomitant]
     Route: 065
  6. LASILIX FAIBLE [Concomitant]
     Route: 065
  7. DAFALGAN [Concomitant]
     Route: 065
  8. PRIMPERAN TAB [Concomitant]
     Route: 065

REACTIONS (2)
  - JUGULAR VEIN THROMBOSIS [None]
  - PULMONARY EMBOLISM [None]
